FAERS Safety Report 9224380 (Version 1)
Quarter: 2013Q2

REPORT INFORMATION
  Report Type: Spontaneous
  Country: US (occurrence: None)
  Receive Date: 20130409
  Receipt Date: 20130409
  Transmission Date: 20140414
  Serious: Yes (Other)
  Sender: FDA-Public Use
  Company Number: None

PATIENT
  Age: 58 Year
  Sex: Male
  Weight: 77.11 kg

DRUGS (2)
  1. VESICARE [Suspect]
     Dosage: (1) AM
     Route: 048
  2. CLONAZEPAM [Concomitant]

REACTIONS (4)
  - Dizziness [None]
  - Dizziness [None]
  - Confusional state [None]
  - Vertigo [None]
